FAERS Safety Report 9630744 (Version 1)
Quarter: 2013Q4

REPORT INFORMATION
  Report Type: Spontaneous
  Country: US (occurrence: None)
  Receive Date: 20131016
  Receipt Date: 20131016
  Transmission Date: 20140711
  Serious: Yes (Other)
  Sender: FDA-Public Use
  Company Number: None

PATIENT
  Age: 83 Year
  Sex: Male

DRUGS (11)
  1. EYLEA [Suspect]
     Indication: AGE-RELATED MACULAR DEGENERATION
     Dosage: 2MG  MONTHLY  INTRAVITREAL
     Dates: start: 20120921
  2. NORVASC [Concomitant]
  3. LABETOLOL 200MG TEVA [Concomitant]
  4. DIGOXIN [Concomitant]
  5. TRILIPIX [Concomitant]
  6. SYNTHROID [Concomitant]
  7. PERCOCET [Concomitant]
  8. LASIX [Concomitant]
  9. LUTEIN [Concomitant]
  10. VITAMIN D [Concomitant]
  11. CELEXA [Concomitant]

REACTIONS (2)
  - Visual acuity reduced [None]
  - Vitritis [None]
